FAERS Safety Report 7431970-5 (Version None)
Quarter: 2011Q1

REPORT INFORMATION
  Report Type: 
  Country: None (occurrence: None)
  Receive Date: 20110302
  Receipt Date: 20101022
  Transmission Date: 20110831
  Serious: No
  Sender: FDA-Public Use
  Company Number: 020922

PATIENT
  Sex: Male
  Weight: 102 kg

DRUGS (6)
  1. LANSOPRAZOLE [Concomitant]
  2. COUMADIN [Concomitant]
  3. COREG [Concomitant]
  4. PERCOCET [Concomitant]
  5. CIMZIA [Suspect]
     Indication: CROHN'S DISEASE
     Dosage: 400 MG 1X/MONTH SUBCUTANEOUS
     Route: 058
     Dates: start: 20090701
  6. VICODIN [Concomitant]

REACTIONS (1)
  - CROHN'S DISEASE [None]
